FAERS Safety Report 13112838 (Version 1)
Quarter: 2017Q1

REPORT INFORMATION
  Report Type: Spontaneous
  Country: US (occurrence: US)
  Receive Date: 20170112
  Receipt Date: 20170112
  Transmission Date: 20170428
  Serious: Yes (Disabling)
  Sender: FDA-Public Use
  Company Number: None

PATIENT
  Age: 79 Year
  Sex: Male
  Weight: 67.5 kg

DRUGS (4)
  1. LIPITOR [Concomitant]
     Active Substance: ATORVASTATIN CALCIUM
  2. LEVOFLOXACIN DR. REDDY PHARMACEUTICALS [Suspect]
     Active Substance: LEVOFLOXACIN
     Indication: URINARY TRACT INFECTION
     Dosage: ?          QUANTITY:1 TABLET(S);?
     Route: 048
     Dates: start: 20170110, end: 20170111
  3. NORVASC [Concomitant]
     Active Substance: AMLODIPINE BESYLATE
  4. GENERAL MULTIVITAMIN [Concomitant]

REACTIONS (2)
  - Tendon rupture [None]
  - Gait disturbance [None]

NARRATIVE: CASE EVENT DATE: 20170111
